FAERS Safety Report 9337685 (Version 2)
Quarter: 2013Q4

REPORT INFORMATION
  Report Type: Spontaneous
  Country: US (occurrence: US)
  Receive Date: 20130607
  Receipt Date: 20131113
  Transmission Date: 20140711
  Serious: Yes (Death, Hospitalization)
  Sender: FDA-Public Use
  Company Number: US-B.I. PHARMACEUTICALS,INC./RIDGEFIELD-2013-BI-15767BP

PATIENT
  Age: 70 Year
  Sex: Female
  Weight: 95.27 kg

DRUGS (6)
  1. PRADAXA [Suspect]
     Indication: ANTICOAGULANT THERAPY
     Dates: start: 20110602, end: 20130201
  2. PRADAXA [Suspect]
     Indication: ATRIAL FIBRILLATION
  3. MACRODANTIN [Concomitant]
  4. LIPITOR [Concomitant]
  5. LASIX [Concomitant]
  6. TOPROL [Concomitant]

REACTIONS (6)
  - Haemorrhage intracranial [Fatal]
  - Cerebral haemorrhage [Fatal]
  - Fall [Unknown]
  - Head injury [Unknown]
  - Coagulopathy [Unknown]
  - Contusion [Unknown]
